FAERS Safety Report 10022886 (Version 4)
Quarter: 2014Q2

REPORT INFORMATION
  Report Type: Report from Study
  Country: US (occurrence: US)
  Receive Date: 20140319
  Receipt Date: 20140513
  Transmission Date: 20141212
  Serious: Yes (Hospitalization, Other)
  Sender: FDA-Public Use
  Company Number: US-ABBVIE-14P-163-1204348-00

PATIENT
  Age: 51 Year
  Sex: Female

DRUGS (15)
  1. HUMIRA [Suspect]
     Indication: CROHN^S DISEASE
     Dates: start: 20140206, end: 20140206
  2. HUMIRA [Suspect]
     Dates: start: 20140220, end: 20140220
  3. HUMIRA [Suspect]
     Route: 058
     Dates: start: 20140306
  4. METHOTREXATE [Suspect]
     Indication: CROHN^S DISEASE
     Dosage: (1ML) EVERY FRIDAY
     Route: 058
  5. FLAGYL [Suspect]
     Indication: PRODUCT USED FOR UNKNOWN INDICATION
  6. FOLIC ACID [Concomitant]
     Indication: CROHN^S DISEASE
  7. CLONAZEPAM [Concomitant]
     Indication: DEPRESSION
  8. PROMETHAZINE [Concomitant]
     Indication: NAUSEA
  9. ZOFRAN [Concomitant]
     Indication: NAUSEA
  10. NORCO [Concomitant]
     Indication: PRODUCT USED FOR UNKNOWN INDICATION
  11. CITALOPRAM HBR [Concomitant]
     Indication: DEPRESSION
  12. LOTRIMIN [Concomitant]
     Indication: DIARRHOEA
     Dosage: 1-2 TABS
  13. VENTOLIN [Concomitant]
     Indication: ASTHMA
     Dosage: AS NEEDED
  14. ADVAIR [Concomitant]
     Indication: ASTHMA
  15. CREAMS [Concomitant]
     Indication: PSORIASIS

REACTIONS (44)
  - Inflammatory bowel disease [Recovering/Resolving]
  - Nausea [Not Recovered/Not Resolved]
  - Somnolence [Not Recovered/Not Resolved]
  - Alopecia [Not Recovered/Not Resolved]
  - Headache [Not Recovered/Not Resolved]
  - Decreased appetite [Not Recovered/Not Resolved]
  - Pain [Not Recovered/Not Resolved]
  - Vomiting [Not Recovered/Not Resolved]
  - Nasopharyngitis [Not Recovered/Not Resolved]
  - Sinus congestion [Not Recovered/Not Resolved]
  - Rhinorrhoea [Not Recovered/Not Resolved]
  - Cough [Not Recovered/Not Resolved]
  - Pyrexia [Not Recovered/Not Resolved]
  - Mole excision [Not Recovered/Not Resolved]
  - Dermal cyst [Not Recovered/Not Resolved]
  - Malaise [Not Recovered/Not Resolved]
  - Asthenia [Not Recovered/Not Resolved]
  - Fluid intake reduced [Not Recovered/Not Resolved]
  - Fall [Unknown]
  - Bacterial infection [Not Recovered/Not Resolved]
  - Diarrhoea [Not Recovered/Not Resolved]
  - Abdominal pain upper [Not Recovered/Not Resolved]
  - Injection site pain [Not Recovered/Not Resolved]
  - Injection site pain [Not Recovered/Not Resolved]
  - Injection site haemorrhage [Unknown]
  - Injection site bruising [Unknown]
  - Feeling abnormal [Unknown]
  - Pain [Unknown]
  - Asthenia [Unknown]
  - Fatigue [Unknown]
  - Hypophagia [Unknown]
  - Faecal incontinence [Unknown]
  - Viral infection [Unknown]
  - Dehydration [Unknown]
  - Drug ineffective [Unknown]
  - Alopecia [Unknown]
  - Onychomadesis [Unknown]
  - Faecal incontinence [Unknown]
  - Depressed mood [Unknown]
  - Fibromyalgia [Unknown]
  - Stomatitis [Not Recovered/Not Resolved]
  - Constipation [Not Recovered/Not Resolved]
  - Hyperaesthesia [Not Recovered/Not Resolved]
  - Product taste abnormal [Not Recovered/Not Resolved]
